FAERS Safety Report 7961064-1 (Version None)
Quarter: 2011Q4

REPORT INFORMATION
  Report Type: 
  Country: None (occurrence: None)
  Receive Date: 20111207
  Receipt Date: 20111130
  Transmission Date: 20120403
  Serious: Yes (Death)
  Sender: FDA-Public Use
  Company Number: JP-UCBSA-046833

PATIENT
  Age: 73 Year
  Sex: Male

DRUGS (2)
  1. VALPROATE SODIUM [Concomitant]
     Indication: PARTIAL SEIZURES WITH SECONDARY GENERALISATION
     Dosage: DAILY DOSE 600 MG
     Route: 048
  2. KEPPRA [Suspect]
     Indication: PARTIAL SEIZURES WITH SECONDARY GENERALISATION
     Dosage: AFTER MEAL
     Route: 048
     Dates: start: 20110808, end: 20111022

REACTIONS (3)
  - PNEUMONIA [None]
  - DIARRHOEA [None]
  - MULTI-ORGAN FAILURE [None]
